FAERS Safety Report 10083316 (Version 2)
Quarter: 2014Q2

REPORT INFORMATION
  Report Type: Spontaneous
  Country: KR (occurrence: KR)
  Receive Date: 20140417
  Receipt Date: 20140417
  Transmission Date: 20141212
  Serious: Yes (Other)
  Sender: FDA-Public Use
  Company Number: KR-RANBAXY-2014RR-79567

PATIENT
  Age: 58 Year
  Sex: Male

DRUGS (4)
  1. VALPROIC ACID [Suspect]
     Indication: EPILEPSY
     Dosage: 2000 MG, DAILY
     Route: 065
  2. OXCARBAZEPINE [Suspect]
     Indication: EPILEPSY
     Dosage: UNK
     Route: 065
  3. PREGABALIN [Suspect]
     Indication: EPILEPSY
     Dosage: UNK
     Route: 065
  4. LAMOTRIGINE [Suspect]
     Indication: EPILEPSY
     Dosage: UNK
     Route: 065

REACTIONS (1)
  - Toxic encephalopathy [Recovered/Resolved]
